FAERS Safety Report 8552690-X (Version None)
Quarter: 2012Q3

REPORT INFORMATION
  Report Type: 
  Country: None (occurrence: None)
  Receive Date: 20120731
  Receipt Date: 20120726
  Transmission Date: 20120928
  Serious: No
  Sender: FDA-Public Use
  Company Number: US-PFIZER INC-2012182380

PATIENT

DRUGS (1)
  1. TORISEL [Suspect]
     Dosage: UNK, WEEKLY

REACTIONS (1)
  - ANAEMIA [None]
